FAERS Safety Report 7282114-4 (Version None)
Quarter: 2011Q1

REPORT INFORMATION
  Report Type: 
  Country: None (occurrence: None)
  Receive Date: 20110208
  Receipt Date: 20110131
  Transmission Date: 20110831
  Serious: Yes (Hospitalization)
  Sender: FDA-Public Use
  Company Number: JP-AMGEN-JPNCT2010009639

PATIENT
  Age: 75 Year
  Sex: Male
  Weight: 65 kg

DRUGS (16)
  1. RENIVACE [Concomitant]
     Dosage: UNK
     Route: 048
  2. SELOKEN L [Concomitant]
     Dosage: UNK
     Route: 048
  3. GASTER [Concomitant]
     Dosage: UNK
     Route: 042
  4. SOLDEM 1 [Concomitant]
     Dosage: UNK
     Route: 042
  5. FULMETA [Concomitant]
     Dosage: UNK
     Route: 062
  6. PARIET [Concomitant]
     Dosage: UNK
     Route: 048
  7. CALCICOL [Concomitant]
     Dosage: UNK
     Route: 042
  8. GLUCOSE [Concomitant]
     Route: 042
  9. PANITUMUMAB [Suspect]
     Dosage: 6 MG/KG, Q2WK
     Route: 041
     Dates: start: 20101203, end: 20101217
  10. HIRUDOID SOFT [Concomitant]
     Dosage: UNK
     Route: 062
  11. VITAMEDIN [Concomitant]
     Dosage: UNK
     Route: 042
  12. PANITUMUMAB [Suspect]
     Indication: COLORECTAL CANCER
     Dosage: 6 MG/KG, Q2WK
     Route: 041
     Dates: start: 20100713, end: 20100713
  13. CALONAL [Concomitant]
     Dosage: UNK
     Route: 048
  14. GASMOTIN [Concomitant]
     Dosage: UNK
     Route: 048
  15. PENTAZOCINE LACTATE [Concomitant]
     Dosage: UNK
     Route: 048
  16. ADALAT CC [Concomitant]
     Dosage: UNK
     Route: 048

REACTIONS (5)
  - DECREASED APPETITE [None]
  - MALAISE [None]
  - URINARY TRACT INFECTION [None]
  - C-REACTIVE PROTEIN INCREASED [None]
  - BLOOD POTASSIUM INCREASED [None]
